APPROVED DRUG PRODUCT: CEFPROZIL
Active Ingredient: CEFPROZIL
Strength: 250MG
Dosage Form/Route: TABLET;ORAL
Application: A065208 | Product #001 | TE Code: AB
Applicant: TEVA PHARMACEUTICALS USA INC
Approved: Dec 6, 2005 | RLD: No | RS: No | Type: RX